FAERS Safety Report 25114039 (Version 3)
Quarter: 2025Q2

REPORT INFORMATION
  Report Type: Spontaneous
  Country: US (occurrence: US)
  Receive Date: 20250324
  Receipt Date: 20250422
  Transmission Date: 20250716
  Serious: No
  Sender: PFIZER
  Company Number: US-PFIZER INC-202500063100

PATIENT
  Age: 66 Year
  Sex: Female
  Weight: 91.9 kg

DRUGS (26)
  1. IBRANCE [Suspect]
     Active Substance: PALBOCICLIB
     Indication: Breast cancer stage IV
     Route: 048
     Dates: start: 20250203
  2. CHLORTHALIDONE [Concomitant]
     Active Substance: CHLORTHALIDONE
  3. POTASSIUM CHLORIDE [Concomitant]
     Active Substance: POTASSIUM CHLORIDE
  4. ALBUTEROL SULFATE [Concomitant]
     Active Substance: ALBUTEROL SULFATE
     Indication: Wheezing
  5. ALBUTEROL SULFATE [Concomitant]
     Active Substance: ALBUTEROL SULFATE
     Indication: Dyspnoea
     Dosage: 2 DF, 4X/DAY (TAKE 2 PUFFS EVERY 6 HOURS AS NEEDED; 108 (90 BASE) UG/ACT; AERO SOLUTION)
     Route: 048
  6. TENORMIN [Concomitant]
     Active Substance: ATENOLOL
     Dosage: 100 MG, 2X/DAY (TAKE 1 TABLET (100 MG TOTAL) 2 TIMES DAILY)
     Route: 048
  7. BENZONATATE [Concomitant]
     Active Substance: BENZONATATE
  8. GUAIFENESIN [Concomitant]
     Active Substance: GUAIFENESIN
  9. GUAIFENESIN [Concomitant]
     Active Substance: GUAIFENESIN
     Dosage: UNK, DAILY (DO TERRA)
     Route: 048
  10. LISINOPRIL [Concomitant]
     Active Substance: LISINOPRIL
  11. TRAZODONE [Concomitant]
     Active Substance: TRAZODONE HYDROCHLORIDE
  12. VALACYCLOVIR [Concomitant]
     Active Substance: VALACYCLOVIR HYDROCHLORIDE
  13. ZOLPIDEM [Concomitant]
     Active Substance: ZOLPIDEM TARTRATE
  14. PULMICORT FLEXHALER [Concomitant]
     Active Substance: BUDESONIDE
     Dosage: 1 DF, 2X/DAY (INHALE 1 PUFF INTO LUNGS 2 TIMES DAILY; 90 MG/ACT; AEROSOL POWDER, BREATH ACTIVATED)
  15. VOLTAREN [Concomitant]
     Active Substance: DICLOFENAC SODIUM
     Dosage: 75 MG, 2X/DAY (TAKE 1 TABLET (75 MG TOTAL) 2 TIMES DAILY AS NEEDED; TAB EC)
     Route: 048
  16. TENEX [Concomitant]
     Active Substance: GUANFACINE HYDROCHLORIDE
     Dosage: 3 MG, DAILY (1 TABLET IN THE MORNING AND 2 TABLETS AT NIGHT)
  17. APRESOLINE HYDROCHLORIDE [Concomitant]
     Active Substance: HYDRALAZINE HYDROCHLORIDE
     Dosage: 25 MG, 3X/DAY (TAKE 1 TABLET (25 MG TOTAL) 3 TIMES DAILY; DOSE INCREASE)
     Route: 048
  18. HYDRODIURIL [Concomitant]
     Active Substance: HYDROCHLOROTHIAZIDE
     Dosage: 50 MG, 1X/DAY (TAKE 1 TABLET (50 MG TOTAL) EVERY MORNING)
     Route: 048
  19. FEMARA [Concomitant]
     Active Substance: LETROZOLE
     Dosage: 2.5 MG, DAILY (TAKE 1 TABLET)
     Route: 048
  20. PRINIVIL [Concomitant]
     Active Substance: LISINOPRIL
     Dosage: 20 MG, 3X/DAY (TAKE 1 TABLET THREE TIMES DAY)
     Route: 048
  21. BACTROBAN [Concomitant]
     Active Substance: MUPIROCIN CALCIUM
     Dosage: UNK, 3X/DAY (APPLY THREE TIMES DAILY AS NEEDED)
     Route: 061
  22. ZOFRAN [Concomitant]
     Active Substance: ONDANSETRON HYDROCHLORIDE
     Indication: Nausea
     Dosage: 8 MG, 3X/DAY (TAKE 1 TABLET (8 MG TOTAL) EVERY 8 HOURS AS NEEDED; DO NOT EXCEED 24 MG IN 24 HOURS)
     Route: 048
  23. ROXICODONE [Concomitant]
     Active Substance: OXYCODONE HYDROCHLORIDE
     Indication: Pain
     Dosage: 5 MG, EVERY 4 HRS (TAKE 1 TABLET (5 MG TOTAL) EVERY 4 HOURS AS NEEDED)
     Route: 048
  24. DESYREL [Concomitant]
     Active Substance: TRAZODONE HYDROCHLORIDE
     Dosage: 50 MG, 1X/DAY (TAKE 1 TABLET (50 MG TOTAL) NIGHTLY AT BEDTIME)
     Route: 048
  25. VALTREX [Concomitant]
     Active Substance: VALACYCLOVIR HYDROCHLORIDE
     Dosage: 1 G, DAILY (TAKE 1 TABLET (1000 MG TOTAL) DAILY AS NEEDED)
     Route: 048
  26. AMBIEN [Concomitant]
     Active Substance: ZOLPIDEM TARTRATE
     Indication: Sleep disorder
     Dosage: 10 MG, 1X/DAY (TAKE 1 TABLET (10 MG TOTAL) NIGHTLY AS NEEDED)
     Route: 048

REACTIONS (3)
  - Flatulence [Unknown]
  - Eructation [Unknown]
  - Off label use [Unknown]

NARRATIVE: CASE EVENT DATE: 20250201
